FAERS Safety Report 4820326-7 (Version None)
Quarter: 2005Q4

REPORT INFORMATION
  Report Type: 
  Country: None (occurrence: None)
  Receive Date: 20051014
  Receipt Date: 20050905
  Transmission Date: 20060501
  Serious: No
  Sender: FDA-Public Use
  Company Number: 2005SP002637

PATIENT
  Age: 73 Year
  Sex: Female

DRUGS (4)
  1. LUNESTA [Suspect]
     Indication: INSOMNIA
     Dosage: 0.33 MG;ORAL, 0.5 MG;ORAL
     Route: 048
     Dates: start: 20050501, end: 20050501
  2. LUNESTA [Suspect]
     Indication: INSOMNIA
     Dosage: 0.33 MG;ORAL, 0.5 MG;ORAL
     Route: 048
     Dates: start: 20050101, end: 20050601
  3. DALMANE [Concomitant]
  4. ACTONEL [Concomitant]

REACTIONS (7)
  - AMNESIA [None]
  - BACK PAIN [None]
  - DIZZINESS [None]
  - FALL [None]
  - FEELING ABNORMAL [None]
  - GAIT DISTURBANCE [None]
  - HALLUCINATION [None]
